FAERS Safety Report 18926560 (Version 2)
Quarter: 2021Q1

REPORT INFORMATION
  Report Type: Spontaneous
  Country: JP (occurrence: JP)
  Receive Date: 20210223
  Receipt Date: 20210310
  Transmission Date: 20210420
  Serious: Yes (Other)
  Sender: FDA-Public Use
  Company Number: JP-AMGEN-JPNSP2020176795

PATIENT
  Age: 12 Year
  Sex: Female

DRUGS (29)
  1. DARBEPOETIN ALFA [Suspect]
     Active Substance: DARBEPOETIN ALFA
     Indication: NEPHROGENIC ANAEMIA
     Dosage: 40 MICROGRAM, Q4WK
     Route: 042
     Dates: start: 20150818
  2. DARBEPOETIN ALFA [Suspect]
     Active Substance: DARBEPOETIN ALFA
     Dosage: 40 MICROGRAM, Q4WK
     Route: 042
     Dates: start: 20151117
  3. DARBEPOETIN ALFA [Suspect]
     Active Substance: DARBEPOETIN ALFA
     Dosage: 60 MICROGRAM, Q4WK
     Route: 042
     Dates: start: 20160209
  4. GENOTROPIN GOQUICK [Suspect]
     Active Substance: SOMATROPIN
     Dosage: 0.75 MG
     Route: 058
     Dates: start: 20160119
  5. GENOTROPIN GOQUICK [Suspect]
     Active Substance: SOMATROPIN
     Dosage: 0.9 MG
     Route: 058
     Dates: start: 20160301
  6. GENOTROPIN GOQUICK [Suspect]
     Active Substance: SOMATROPIN
     Dosage: 1.2 MG
     Route: 058
     Dates: start: 20171121
  7. GENOTROPIN GOQUICK [Suspect]
     Active Substance: SOMATROPIN
     Dosage: 1.65 MG
     Route: 058
     Dates: start: 20200414
  8. GENOTROPIN GOQUICK [Suspect]
     Active Substance: SOMATROPIN
     Dosage: 1.5 MG
     Route: 058
     Dates: start: 20200519
  9. DARBEPOETIN ALFA [Suspect]
     Active Substance: DARBEPOETIN ALFA
     Dosage: 60 MICROGRAM, Q4WK
     Route: 040
     Dates: start: 20191015
  10. GENOTROPIN GOQUICK [Suspect]
     Active Substance: SOMATROPIN
     Dosage: 1.2 MG
     Route: 058
     Dates: start: 20180717
  11. COCARL [Concomitant]
     Active Substance: ACETAMINOPHEN
     Dosage: 200 MG, PRN
     Route: 048
     Dates: start: 20170221
  12. BRUFEN [IBUPROFEN SODIUM] [Concomitant]
     Dosage: 100 MG, PRN
     Route: 048
     Dates: start: 20201102
  13. DARBEPOETIN ALFA [Suspect]
     Active Substance: DARBEPOETIN ALFA
     Dosage: 40 MICROGRAM, Q4WK
     Route: 042
     Dates: start: 20160405
  14. ARGAMATE [Concomitant]
     Active Substance: CALCIUM POLYSTYRENE SULFONATE
     Indication: HYPERKALAEMIA
     Dosage: 25 GRAM, QD
     Route: 048
     Dates: start: 20150819, end: 20151214
  15. ALFAROL [Concomitant]
     Active Substance: ALFACALCIDOL
     Indication: CHRONIC KIDNEY DISEASE-MINERAL AND BONE DISORDER
     Dosage: 0.25 UG, QD
     Route: 048
     Dates: start: 20150825, end: 20190325
  16. COCARL [Concomitant]
     Active Substance: ACETAMINOPHEN
     Dosage: 200 MG, PRN
     Route: 048
     Dates: start: 20171024
  17. GENOTROPIN GOQUICK [Suspect]
     Active Substance: SOMATROPIN
     Dosage: 1.35 MG
     Route: 058
     Dates: start: 20181120
  18. COCARL [Concomitant]
     Active Substance: ACETAMINOPHEN
     Indication: HEADACHE
     Dosage: 200 MG, PRN
     Route: 048
     Dates: start: 20161101
  19. DARBEPOETIN ALFA [Suspect]
     Active Substance: DARBEPOETIN ALFA
     Dosage: 60 MICROGRAM, Q4WK
     Route: 042
     Dates: start: 20151020
  20. DARBEPOETIN ALFA [Suspect]
     Active Substance: DARBEPOETIN ALFA
     Dosage: 60 MICROGRAM, Q4WK
     Route: 042
     Dates: start: 20160927
  21. GENOTROPIN GOQUICK [Suspect]
     Active Substance: SOMATROPIN
     Indication: DWARFISM
     Dosage: 0.6 MG
     Route: 058
     Dates: start: 20151117
  22. GENOTROPIN GOQUICK [Suspect]
     Active Substance: SOMATROPIN
     Dosage: 1.05 MG
     Route: 058
     Dates: start: 20160927
  23. FEBURIC [Concomitant]
     Active Substance: FEBUXOSTAT
     Indication: HYPERURICAEMIA
     Dosage: 10 MG, QD
     Route: 048
     Dates: start: 20200519
  24. BRUFEN [IBUPROFEN SODIUM] [Concomitant]
     Indication: HEADACHE
     Dosage: 100 MG, PRN
     Route: 048
     Dates: start: 20201013
  25. KAYEXALATE [Concomitant]
     Active Substance: SODIUM POLYSTYRENE SULFONATE
     Indication: HYPERKALAEMIA
     Dosage: 1 DF, QD
     Route: 048
     Dates: start: 20151215, end: 20180326
  26. GENOTROPIN GOQUICK [Suspect]
     Active Substance: SOMATROPIN
     Dosage: 1.5 MG
     Route: 058
     Dates: start: 20190924
  27. FERROUS CITRATE NA [Concomitant]
     Active Substance: SODIUM FERROUS CITRATE
     Indication: IRON DEFICIENCY ANAEMIA
     Dosage: 50 MG, QD
     Route: 048
     Dates: start: 20171226, end: 20180219
  28. ALFAROL [Concomitant]
     Active Substance: ALFACALCIDOL
     Dosage: 0.50 UG, QD
     Route: 048
     Dates: start: 20190326
  29. GENOTROPIN GOQUICK [Suspect]
     Active Substance: SOMATROPIN
     Dosage: 1.35 MG
     Route: 058
     Dates: start: 20180327

REACTIONS (1)
  - Langerhans^ cell histiocytosis [Recovering/Resolving]

NARRATIVE: CASE EVENT DATE: 20201102
